FAERS Safety Report 9188766 (Version 2)
Quarter: 2013Q2

REPORT INFORMATION
  Report Type: Report from Study
  Country: JP (occurrence: JP)
  Receive Date: 20130326
  Receipt Date: 20130502
  Transmission Date: 20140414
  Serious: No
  Sender: FDA-Public Use
  Company Number: JP-ROCHE-1206121

PATIENT
  Age: 83 Year
  Sex: Male

DRUGS (2)
  1. RANIBIZUMAB [Suspect]
     Indication: AGE-RELATED MACULAR DEGENERATION
     Route: 050
     Dates: start: 20100216, end: 20100216
  2. RANIBIZUMAB [Suspect]
     Route: 042
     Dates: start: 20120614, end: 20120614

REACTIONS (1)
  - Visual acuity reduced [Unknown]
